FAERS Safety Report 5191213-2 (Version None)
Quarter: 2006Q4

REPORT INFORMATION
  Report Type: 
  Country: None (occurrence: None)
  Receive Date: 20061218
  Receipt Date: 20061211
  Transmission Date: 20070319
  Serious: Yes (Life-Threatening)
  Sender: FDA-Public Use
  Company Number: GXKR2006DE07444

PATIENT
  Age: 54 Year
  Sex: Female
  Weight: 75 kg

DRUGS (5)
  1. CIPROFLOXACIN [Suspect]
     Dosage: 500 MG, QD, ORAL
     Route: 048
     Dates: start: 20060330, end: 20060412
  2. EDRONAX (REBOXETINE) [Concomitant]
  3. PANTOPRAZOLE SODIUM [Concomitant]
  4. AMITRIPTYLINE HCL [Concomitant]
  5. LEGALON (SILYBUM MARIANUM) [Concomitant]

REACTIONS (1)
  - APLASTIC ANAEMIA [None]
